FAERS Safety Report 4675304-8 (Version None)
Quarter: 2005Q2

REPORT INFORMATION
  Report Type: 
  Country: None (occurrence: None)
  Receive Date: 20050525
  Receipt Date: 20050513
  Transmission Date: 20051028
  Serious: Yes (Hospitalization, Other)
  Sender: FDA-Public Use
  Company Number: 2005075750

PATIENT
  Age: 10 Year
  Sex: Female

DRUGS (1)
  1. GENOTONORM (SOMATROPIN) [Suspect]
     Indication: HYPOPITUITARISM
     Dates: start: 20040623

REACTIONS (3)
  - CYST [None]
  - EPILEPSY [None]
  - POST PROCEDURAL COMPLICATION [None]
